FAERS Safety Report 16265108 (Version 1)
Quarter: 2019Q2

REPORT INFORMATION
  Report Type: Report from Study
  Country: US (occurrence: US)
  Receive Date: 20190502
  Receipt Date: 20190502
  Transmission Date: 20190711
  Serious: No
  Sender: FDA-Public Use
  Company Number: US-RETROPHIN, INC.-2018RTN00050

PATIENT
  Age: 0 Year
  Sex: Male
  Weight: 4.54 kg

DRUGS (7)
  1. CHOLBAM [Suspect]
     Active Substance: CHOLIC ACID
     Indication: CEREBROHEPATORENAL SYNDROME
     Dosage: 50 MG, 1X/DAY
     Route: 048
     Dates: start: 20180814, end: 20180816
  2. CHOLBAM [Suspect]
     Active Substance: CHOLIC ACID
     Dosage: 50 MG, 1X/DAY
     Route: 048
     Dates: start: 20180821
  3. FERROUS SULFATE. [Concomitant]
     Active Substance: FERROUS SULFATE
     Dosage: 75 MG, 1X/DAY
     Dates: start: 20180920
  4. ACETAZOLAMIDE POWDER [Concomitant]
     Dosage: UNK, 3X/DAY
     Route: 048
     Dates: start: 20180920
  5. LATANOPROST. [Concomitant]
     Active Substance: LATANOPROST
     Dosage: 1 GTT (IN BOTH EYES), 1X/DAY AT BEDTIME
     Route: 047
     Dates: start: 20180920
  6. PHENOBARBITAL. [Concomitant]
     Active Substance: PHENOBARBITAL
     Dosage: 16 MG, 2X/DAY (EVERY 12 HOURS)
     Dates: start: 20180920
  7. VITAMIN D3 [Concomitant]
     Active Substance: CHOLECALCIFEROL
     Dosage: 400 U, 1X/DAY
     Dates: start: 20180920

REACTIONS (6)
  - Blood alkaline phosphatase increased [Recovering/Resolving]
  - Gastrooesophageal reflux disease [Recovering/Resolving]
  - Fungal skin infection [Unknown]
  - Gamma-glutamyltransferase increased [Recovering/Resolving]
  - Gastrostomy tube site complication [Unknown]
  - Crying [Recovering/Resolving]

NARRATIVE: CASE EVENT DATE: 2018
